FAERS Safety Report 6537570-3 (Version None)
Quarter: 2010Q1

REPORT INFORMATION
  Report Type: 
  Country: None (occurrence: None)
  Receive Date: 20100114
  Receipt Date: 20100111
  Transmission Date: 20100710
  Serious: Yes (Other)
  Sender: FDA-Public Use
  Company Number: FI-ROCHE-678843

PATIENT
  Sex: Female

DRUGS (2)
  1. HERCEPTIN [Suspect]
     Route: 065
  2. UNSPECIFIED DRUGS [Concomitant]
     Dosage: DRUG REPORTED AS UNSPECIFIED MOOD-ALTERING DRUGS.

REACTIONS (1)
  - METASTASES TO CENTRAL NERVOUS SYSTEM [None]
